FAERS Safety Report 9300716 (Version 1)
Quarter: 2013Q2

REPORT INFORMATION
  Report Type: Spontaneous
  Country: US (occurrence: None)
  Receive Date: 20130520
  Receipt Date: 20130520
  Transmission Date: 20140414
  Serious: Yes (Other)
  Sender: FDA-Public Use
  Company Number: None

PATIENT
  Age: 69 Year
  Sex: Female
  Weight: 49.9 kg

DRUGS (2)
  1. ACYCLOVIR 800MG [Suspect]
     Indication: NERVE COMPRESSION
     Dosage: ORIGINALLY 1 3 TIMES A DAY PO
     Route: 048
     Dates: start: 20130104, end: 20130426
  2. ACYCLOVIR 800MG [Suspect]
     Indication: NERVE COMPRESSION
     Dosage: ORIGINALLY 1 3 TIMES A DAY PO
     Route: 048
     Dates: start: 20130104, end: 20130426

REACTIONS (5)
  - Visual impairment [None]
  - Vision blurred [None]
  - Urticaria [None]
  - Multiple allergies [None]
  - Diarrhoea [None]
